FAERS Safety Report 4547123-4 (Version None)
Quarter: 2005Q1

REPORT INFORMATION
  Report Type: 
  Country: None (occurrence: None)
  Receive Date: 20050107
  Receipt Date: 20050103
  Transmission Date: 20050727
  Serious: Yes (Other)
  Sender: FDA-Public Use
  Company Number: GB-BRISTOL-MYERS SQUIBB COMPANY-12810586

PATIENT
  Age: 56 Year
  Sex: Female

DRUGS (3)
  1. CYCLOPHOSPHAMIDE [Suspect]
     Indication: BREAST CANCER
     Route: 042
  2. METHOTREXATE [Suspect]
     Indication: BREAST CANCER
     Route: 042
  3. FLUOROURACIL [Suspect]
     Indication: BREAST CANCER
     Dosage: 987.5 MG BOLUS.  ALTERNATING 1 AND 3 WEEK INTERVALS.
     Route: 042

REACTIONS (3)
  - PERIPHERAL ISCHAEMIA [None]
  - PERIPHERAL OCCLUSIVE DISEASE [None]
  - TOE AMPUTATION [None]
